FAERS Safety Report 11427686 (Version 1)
Quarter: 2015Q3

REPORT INFORMATION
  Report Type: Spontaneous
  Country: US (occurrence: US)
  Receive Date: 20150828
  Receipt Date: 20150828
  Transmission Date: 20151125
  Serious: Yes (Death, Other)
  Sender: FDA-Public Use
  Company Number: US-CIPLA LTD.-2015US06803

PATIENT

DRUGS (1)
  1. TENOFOVIR DISOPROXIL FUMARATE. [Suspect]
     Active Substance: TENOFOVIR DISOPROXIL FUMARATE
     Indication: HIV INFECTION
     Route: 065

REACTIONS (6)
  - Blood creatinine decreased [Unknown]
  - Muscle atrophy [Unknown]
  - Death [Fatal]
  - Malnutrition [Unknown]
  - Weight decreased [Unknown]
  - Renal tubular disorder [Unknown]
